FAERS Safety Report 8734235 (Version 4)
Quarter: 2013Q1

REPORT INFORMATION
  Report Type: Spontaneous
  Country: JP (occurrence: JP)
  Receive Date: 20120821
  Receipt Date: 20130118
  Transmission Date: 20140127
  Serious: Yes (Other)
  Sender: FDA-Public Use
  Company Number: JP-AMGEN-JPNSP2012052045

PATIENT
  Age: 63 Year
  Sex: Male

DRUGS (4)
  1. RANMARK [Suspect]
     Indication: METASTASES TO BONE
     Dosage: 120 MG, UNK
     Route: 058
     Dates: start: 201204, end: 201205
  2. ZOMETA [Suspect]
     Indication: METASTASES TO BONE
     Dosage: UNK
     Route: 041
     Dates: start: 201202, end: 201203
  3. ZOMETA [Suspect]
     Route: 042
     Dates: start: 201202, end: 201203
  4. ZOMETA [Suspect]
     Dosage: UNKNOWN
     Route: 065
     Dates: start: 201212

REACTIONS (1)
  - Osteonecrosis of jaw [Not Recovered/Not Resolved]
